FAERS Safety Report 9118663 (Version 1)
Quarter: 2013Q1

REPORT INFORMATION
  Report Type: Spontaneous
  Country: US (occurrence: None)
  Receive Date: 20130221
  Receipt Date: 20130221
  Transmission Date: 20140127
  Serious: Yes (Hospitalization)
  Sender: FDA-Public Use
  Company Number: None

PATIENT
  Age: 54 Year
  Sex: Female

DRUGS (1)
  1. TAMIFLU [Suspect]
     Indication: INFLUENZA
     Dates: start: 20130102, end: 20130106

REACTIONS (7)
  - Urinary tract infection [None]
  - Pneumonia [None]
  - Myalgia [None]
  - Confusional state [None]
  - Gait disturbance [None]
  - Post lumbar puncture syndrome [None]
  - Depression [None]
